FAERS Safety Report 7259251-3 (Version None)
Quarter: 2011Q1

REPORT INFORMATION
  Report Type: 
  Country: None (occurrence: None)
  Receive Date: 20110129
  Receipt Date: 20100728
  Transmission Date: 20110831
  Serious: No
  Sender: FDA-Public Use
  Company Number: US-ABBOTT-10P-163-0660800-00

PATIENT
  Age: 72 Year
  Sex: Male

DRUGS (14)
  1. METFORMIN [Concomitant]
     Indication: DIABETES MELLITUS
  2. LASIX [Concomitant]
     Indication: DIURETIC THERAPY
  3. BYSTOLIC [Concomitant]
     Indication: BLOOD PRESSURE
  4. LASIX [Concomitant]
     Indication: BLOOD PRESSURE
  5. FLOMAX [Concomitant]
     Indication: PROSTATIC DISORDER
  6. ALLOPURINOL [Concomitant]
     Indication: GOUT
  7. BENICAR [Concomitant]
     Indication: BLOOD PRESSURE
  8. TEKTURNA [Concomitant]
     Indication: BLOOD PRESSURE
     Dosage: SAMLE
  9. HUMIRA [Suspect]
     Indication: RHEUMATOID ARTHRITIS
     Dates: start: 20100716
  10. WARFARIN SODIUM [Concomitant]
     Dosage: ON WEDNESDAY AND SUNDAY
  11. WARFARIN SODIUM [Concomitant]
     Indication: PRODUCT USED FOR UNKNOWN INDICATION
     Dosage: DAILY EXCEPT ON WEDNESDAY AND SUNDAY
  12. PREDNISONE [Concomitant]
     Indication: ARTHRITIS
  13. POTASSIUM [Concomitant]
     Indication: MINERAL SUPPLEMENTATION
  14. INSULIN [Concomitant]
     Indication: DIABETES MELLITUS

REACTIONS (3)
  - ARTHRALGIA [None]
  - NECK PAIN [None]
  - MUSCULOSKELETAL PAIN [None]
